FAERS Safety Report 4912177-X (Version None)
Quarter: 2006Q1

REPORT INFORMATION
  Report Type: 
  Country: None (occurrence: None)
  Receive Date: 20060215
  Receipt Date: 20050902
  Transmission Date: 20060701
  Serious: No
  Sender: FDA-Public Use
  Company Number: US-GLAXOSMITHKLINE-A0572873A

PATIENT
  Age: 61 Year
  Sex: Female

DRUGS (10)
  1. VALTREX [Suspect]
     Dosage: 500MG THREE TIMES PER DAY
     Route: 048
  2. UNKNOWN MEDICATION [Suspect]
     Indication: DRUG USE FOR UNKNOWN INDICATION
     Route: 065
  3. BONIVA [Concomitant]
     Indication: OSTEOPOROSIS PROPHYLAXIS
     Dosage: 150MG SINGLE DOSE
     Route: 048
     Dates: start: 20050801
  4. MULTI-VITAMIN [Concomitant]
  5. CALCIUM GLUCONATE [Concomitant]
  6. VIT D [Concomitant]
  7. VIT C [Concomitant]
  8. OMEGA 3 [Concomitant]
     Route: 065
  9. VIT B [Concomitant]
  10. ADVIL [Concomitant]

REACTIONS (3)
  - DIZZINESS [None]
  - HYPERHIDROSIS [None]
  - SENSORY DISTURBANCE [None]
